FAERS Safety Report 24808342 (Version 1)
Quarter: 2025Q1

REPORT INFORMATION
  Report Type: Spontaneous
  Country: US (occurrence: US)
  Receive Date: 20250106
  Receipt Date: 20250106
  Transmission Date: 20250408
  Serious: No
  Sender: ZYDUS PHARM
  Company Number: US-CADILA HEALTHCARE LIMITED-US-ZYDUS-115998

PATIENT

DRUGS (3)
  1. COLESTIPOL [Suspect]
     Active Substance: COLESTIPOL
     Indication: Irritable bowel syndrome
     Route: 048
     Dates: start: 2024
  2. COLESTIPOL [Suspect]
     Active Substance: COLESTIPOL
     Indication: Off label use
  3. LOSARTAN [Concomitant]
     Active Substance: LOSARTAN
     Indication: Hypertension
     Route: 048

REACTIONS (4)
  - Product residue present [Unknown]
  - Drug ineffective for unapproved indication [Unknown]
  - Product substitution issue [Not Recovered/Not Resolved]
  - Product use in unapproved indication [Not Recovered/Not Resolved]

NARRATIVE: CASE EVENT DATE: 20240101
